FAERS Safety Report 19737098 (Version 1)
Quarter: 2021Q3

REPORT INFORMATION
  Report Type: Spontaneous
  Country: US (occurrence: US)
  Receive Date: 20210820
  Receipt Date: 20210820
  Transmission Date: 20211014
  Serious: No
  Sender: FDA-Public Use
  Company Number: None

PATIENT
  Age: 36 Year
  Sex: Female

DRUGS (1)
  1. TECFIDERA [Suspect]
     Active Substance: DIMETHYL FUMARATE
     Indication: MULTIPLE SCLEROSIS
     Dosage: ?          OTHER DOSE:120MGBIDX7DTHEN240;?
     Route: 048
     Dates: start: 20210623

REACTIONS (2)
  - Vascular rupture [None]
  - Ocular vascular disorder [None]

NARRATIVE: CASE EVENT DATE: 20210629
